FAERS Safety Report 22192341 (Version 1)
Quarter: 2023Q2

REPORT INFORMATION
  Report Type: Spontaneous
  Country: US (occurrence: None)
  Receive Date: 20230409
  Receipt Date: 20230409
  Transmission Date: 20230722
  Serious: Yes (Hospitalization)
  Sender: FDA-Public Use
  Company Number: None

PATIENT
  Age: 52 Year
  Sex: Male
  Weight: 105.9 kg

DRUGS (2)
  1. RISPERDAL CONSTA [Suspect]
     Active Substance: RISPERIDONE
     Indication: Schizophrenia
     Dosage: FREQUENCY : EVERY OTHER WEEK;?
     Route: 030
  2. PALIPERIDONE [Suspect]
     Active Substance: PALIPERIDONE
     Indication: Schizophrenia
     Dosage: FREQUENCY : MONTHLY;?
     Route: 030

REACTIONS (8)
  - Tonic clonic movements [None]
  - Confusional state [None]
  - Sedation [None]
  - Incontinence [None]
  - Snoring [None]
  - Encephalopathy [None]
  - Memory impairment [None]
  - Hypoglycaemia [None]

NARRATIVE: CASE EVENT DATE: 20230408
